FAERS Safety Report 24262969 (Version 2)
Quarter: 2024Q3

REPORT INFORMATION
  Report Type: Spontaneous
  Country: US (occurrence: US)
  Receive Date: 20240829
  Receipt Date: 20240930
  Transmission Date: 20241017
  Serious: No
  Sender: PFIZER
  Company Number: US-PFIZER INC-202400244025

PATIENT
  Age: 31 Year
  Sex: Male
  Weight: 92.99 kg

DRUGS (6)
  1. GENOTROPIN [Suspect]
     Active Substance: SOMATROPIN
     Indication: Growth hormone deficiency
     Dosage: 1 MILLIGRAM PER DAY
  2. GENOTROPIN [Suspect]
     Active Substance: SOMATROPIN
     Dosage: 0.5 MG, 1X/DAY (REDUCED THE DOSE TO INSTEAD 1 MILLIGRAM A DAY, A HALF OF MILLIGRAM)
     Dates: end: 2024
  3. ALPRAZOLAM [Concomitant]
     Active Substance: ALPRAZOLAM
     Indication: Post-traumatic stress disorder
     Dosage: 1 MILLIGRAMS OF ALPRAZOLAM PER DAY (GENERIC ONE OF XANAX)
  4. ALPRAZOLAM [Concomitant]
     Active Substance: ALPRAZOLAM
     Dosage: ALSO REPORTED AS TAKE UP TO THREE PER DAY AS NEEDED
  5. LISINOPRIL [Concomitant]
     Active Substance: LISINOPRIL
     Indication: Hypertension
     Dosage: 20 MILLIGRAM, ONCE A DAY
  6. OMEPRAZOLE [Concomitant]
     Active Substance: OMEPRAZOLE
     Indication: Gastrooesophageal reflux disease
     Dosage: 20 MILLIGRAMS, ONCE A DAY

REACTIONS (9)
  - Dizziness [Unknown]
  - Hyperhidrosis [Unknown]
  - Asthenopia [Unknown]
  - Feeling abnormal [Unknown]
  - Blood glucose increased [Unknown]
  - Glucose tolerance impaired [Unknown]
  - Hepatic function abnormal [Unknown]
  - Illness [Unknown]
  - Food craving [Unknown]
